FAERS Safety Report 4550605-2 (Version None)
Quarter: 2004Q4

REPORT INFORMATION
  Report Type: 
  Country: None (occurrence: None)
  Receive Date: 20041227
  Receipt Date: 20040922
  Transmission Date: 20050328
  Serious: No
  Sender: FDA-Public Use
  Company Number: 04P-163-0274054-00

PATIENT
  Age: 59 Year
  Sex: Female
  Weight: 52.6173 kg

DRUGS (8)
  1. HUMIRA [Suspect]
     Indication: RHEUMATOID ARTHRITIS
     Dosage: 40 MG, 1 IN 2 WK, SUBCUTANEOUS
     Route: 058
     Dates: start: 20030101, end: 20030101
  2. HUMIRA [Suspect]
     Indication: RHEUMATOID ARTHRITIS
     Dosage: 40 MG, 1 IN 2 WK, SUBCUTANEOUS
     Route: 058
     Dates: start: 20030101
  3. VENLAFAXINE HCL [Concomitant]
  4. PREDNISONE [Concomitant]
  5. OSTRANORM [Concomitant]
  6. ALPRAZOLAM [Concomitant]
  7. OXYCODONE HCL [Concomitant]
  8. OXYCONTIN [Concomitant]

REACTIONS (3)
  - DRUG INEFFECTIVE [None]
  - VAGINAL MYCOSIS [None]
  - VIRAL INFECTION [None]
